FAERS Safety Report 7607094-0 (Version None)
Quarter: 2011Q3

REPORT INFORMATION
  Report Type: 
  Country: None (occurrence: None)
  Receive Date: 20110713
  Receipt Date: 20110630
  Transmission Date: 20111222
  Serious: Yes (Other)
  Sender: FDA-Public Use
  Company Number: US-UCBSA-033711

PATIENT
  Sex: Male

DRUGS (6)
  1. OSCAL [Concomitant]
  2. MULTI-VITAMIN [Concomitant]
  3. PREDNISONE [Concomitant]
  4. VITAMIN D [Concomitant]
  5. CIMZIA [Suspect]
     Indication: CROHN'S DISEASE
     Dosage: INDUCTION  DOSE (UNKNOWN) :STARTED ON 25-MAR-2011
     Route: 058
     Dates: start: 20110101, end: 20110623
  6. PAXIL [Concomitant]

REACTIONS (4)
  - SKIN INFECTION [None]
  - JOINT SWELLING [None]
  - NASOPHARYNGITIS [None]
  - FUNGAL INFECTION [None]
